FAERS Safety Report 20159412 (Version 1)
Quarter: 2021Q4

REPORT INFORMATION
  Report Type: Spontaneous
  Country: RO (occurrence: RO)
  Receive Date: 20211208
  Receipt Date: 20211208
  Transmission Date: 20220303
  Serious: Yes (Other)
  Sender: FDA-Public Use
  Company Number: RO-SUN PHARMACEUTICAL INDUSTRIES LTD-2021RR-319104

PATIENT
  Age: 73 Year
  Sex: Female

DRUGS (3)
  1. CAPECITABINE [Suspect]
     Active Substance: CAPECITABINE
     Indication: Metastases to heart
     Dosage: UNK
     Route: 065
     Dates: start: 201812
  2. FULVESTRANT [Suspect]
     Active Substance: FULVESTRANT
     Indication: Metastases to heart
     Dosage: UNK
     Route: 065
     Dates: start: 201802
  3. LETROZOLE [Suspect]
     Active Substance: LETROZOLE
     Indication: Metastases to heart
     Dosage: UNK
     Route: 065
     Dates: start: 201802

REACTIONS (1)
  - Disease progression [Unknown]

NARRATIVE: CASE EVENT DATE: 20200601
